FAERS Safety Report 7086360-4 (Version None)
Quarter: 2010Q4

REPORT INFORMATION
  Report Type: 
  Country: None (occurrence: None)
  Receive Date: 20101105
  Receipt Date: 20100916
  Transmission Date: 20110411
  Serious: No
  Sender: FDA-Public Use
  Company Number: US-BAYER-201021491BCC

PATIENT
  Age: 70 Year
  Sex: Female
  Weight: 64 kg

DRUGS (9)
  1. ALEVE (CAPLET) [Suspect]
     Indication: PRODUCT USED FOR UNKNOWN INDICATION
     Dosage: BOTTLE COUNT 50S
     Route: 048
     Dates: start: 20100909
  2. ASPIRIN [Concomitant]
     Indication: CEREBROVASCULAR ACCIDENT
     Dosage: TOTAL DAILY DOSE: 81 MG  UNIT DOSE: 81 MG
     Route: 048
  3. ZOLOFT [Concomitant]
  4. TOPROL-XL [Concomitant]
     Route: 065
  5. LIPITOR [Concomitant]
     Route: 065
  6. ZETIA [Concomitant]
     Route: 065
  7. CALTRATE [Concomitant]
     Route: 065
  8. STOOL SOFTNER [Concomitant]
     Route: 065
  9. VITAMIN B [Concomitant]
     Route: 065

REACTIONS (4)
  - EYE SWELLING [None]
  - HYPERSENSITIVITY [None]
  - PRURITUS GENERALISED [None]
  - URTICARIA [None]
